FAERS Safety Report 5153842-1 (Version None)
Quarter: 2006Q4

REPORT INFORMATION
  Report Type: 
  Country: None (occurrence: None)
  Receive Date: 20061120
  Receipt Date: 20061110
  Transmission Date: 20070319
  Serious: Yes (Other)
  Sender: FDA-Public Use
  Company Number: GB-JNJFOC-20060905352

PATIENT
  Sex: Female

DRUGS (2)
  1. MICRONOR [Suspect]
     Indication: CONTRACEPTION
     Route: 048
  2. NIFEDIPINE [Concomitant]
     Indication: RAYNAUD'S PHENOMENON
     Route: 065

REACTIONS (1)
  - EPISCLERITIS [None]
